FAERS Safety Report 8413591-0 (Version None)
Quarter: 2012Q2

REPORT INFORMATION
  Report Type: 
  Country: None (occurrence: None)
  Receive Date: 20120605
  Receipt Date: 20120531
  Transmission Date: 20120825
  Serious: Yes (Hospitalization, Other)
  Sender: FDA-Public Use
  Company Number: US-ROCHE-1054732

PATIENT
  Sex: Female

DRUGS (5)
  1. COPEGUS [Suspect]
     Dosage: DOSE : DIVIDED DOSES
     Route: 065
  2. PEGASYS [Suspect]
     Indication: HEPATITIS C
     Route: 065
     Dates: start: 20120227
  3. TELAPREVIR [Suspect]
     Indication: HEPATITIS C
     Route: 065
     Dates: start: 20120227
  4. COPEGUS [Suspect]
     Dosage: DOSE : DIVIDED DOSES
     Route: 065
  5. COPEGUS [Suspect]
     Indication: HEPATITIS C
     Dosage: DOSE : DIVIDED DOSES
     Route: 065
     Dates: start: 20120227

REACTIONS (7)
  - ANORECTAL DISCOMFORT [None]
  - PLATELET COUNT DECREASED [None]
  - FULL BLOOD COUNT DECREASED [None]
  - SYNCOPE [None]
  - LOSS OF CONSCIOUSNESS [None]
  - HAEMOGLOBIN DECREASED [None]
  - PRURITUS [None]
